FAERS Safety Report 4418273-8 (Version None)
Quarter: 2004Q3

REPORT INFORMATION
  Report Type: 
  Country: None (occurrence: None)
  Receive Date: 20040809
  Receipt Date: 20040123
  Transmission Date: 20050211
  Serious: No
  Sender: FDA-Public Use
  Company Number: US-GLAXOSMITHKLINE-A0495061A

PATIENT
  Age: 54 Year
  Sex: Female

DRUGS (4)
  1. PAXIL CR [Suspect]
     Indication: DEPRESSION
     Dosage: 12.5MG PER DAY
     Route: 048
     Dates: start: 20031201, end: 20040101
  2. SINEMET [Concomitant]
  3. TASMAR [Concomitant]
  4. LORAZEPAM [Concomitant]

REACTIONS (2)
  - INSOMNIA [None]
  - MUSCLE TWITCHING [None]
